FAERS Safety Report 14418186 (Version 1)
Quarter: 2018Q1

REPORT INFORMATION
  Report Type: Spontaneous
  Country: US (occurrence: US)
  Receive Date: 20180122
  Receipt Date: 20180122
  Transmission Date: 20180509
  Serious: Yes (Other)
  Sender: FDA-Public Use
  Company Number: US-PFIZER INC-2018017897

PATIENT
  Age: 59 Year
  Sex: Female
  Weight: 60.32 kg

DRUGS (6)
  1. BACLOFEN. [Concomitant]
     Active Substance: BACLOFEN
     Indication: MUSCLE DISORDER
     Dosage: UNK
  2. LYRICA [Suspect]
     Active Substance: PREGABALIN
     Indication: FIBROMYALGIA
     Dosage: 100 MG, UNK
  3. HYDROCODONE [Concomitant]
     Active Substance: HYDROCODONE
     Indication: BACK PAIN
     Dosage: UNK
  4. HYDROCODONE [Concomitant]
     Active Substance: HYDROCODONE
     Indication: NECK PAIN
  5. MORPHINE [Concomitant]
     Active Substance: MORPHINE
     Dosage: UNK
  6. LYRICA [Suspect]
     Active Substance: PREGABALIN
     Indication: NEURALGIA
     Dosage: 200 MG, 3X/DAY
     Route: 048
     Dates: start: 2012

REACTIONS (13)
  - Hyperthyroidism [Unknown]
  - Hypoaesthesia [Unknown]
  - Gait disturbance [Unknown]
  - Fibromyalgia [Unknown]
  - Gastroenteritis [Unknown]
  - Burning sensation [Unknown]
  - Confusional state [Unknown]
  - Paraesthesia [Unknown]
  - Swelling [Not Recovered/Not Resolved]
  - Frostbite [Unknown]
  - Condition aggravated [Unknown]
  - Weight increased [Unknown]
  - Diverticulum [Unknown]

NARRATIVE: CASE EVENT DATE: 2016
